FAERS Safety Report 7921138 (Version 3)
Quarter: 2014Q3

REPORT INFORMATION
  Report Type: Spontaneous
  Country: US (occurrence: US)
  Receive Date: 20110429
  Receipt Date: 20140808
  Transmission Date: 20150326
  Serious: Yes (Hospitalization)
  Sender: FDA-Public Use
  Company Number: US-B.I. PHARMACEUTICALS,INC./RIDGEFIELD-2011-BP-11725BP

PATIENT
  Age: 73 Year
  Sex: Female
  Weight: 60.9 kg

DRUGS (16)
  1. VITAMIN B12 [Concomitant]
     Active Substance: CYANOCOBALAMIN
     Dosage: FORMULATION: LOZENGE
     Route: 065
  2. RECLAST [Concomitant]
     Active Substance: ZOLEDRONIC ACID
     Route: 042
     Dates: start: 200907
  3. METANX [Concomitant]
     Active Substance: LEVOMEFOLATE CALCIUM\METHYLCOBALAMIN\PYRIDOXAL PHOSPHATE ANHYDROUS
     Route: 048
  4. PRADAXA [Suspect]
     Active Substance: DABIGATRAN ETEXILATE MESYLATE
     Indication: ATRIAL FIBRILLATION
     Dosage: 300 MG
     Route: 048
     Dates: start: 20110110, end: 20110120
  5. FERROUS SULFATE [Concomitant]
     Active Substance: FERROUS SULFATE\FERROUS SULFATE, DRIED
     Route: 048
  6. FISH OIL CONCENTRATE [Concomitant]
     Route: 048
  7. MULTIVITAMIN [Concomitant]
     Active Substance: VITAMINS
     Route: 048
  8. VERELAN [Concomitant]
     Active Substance: VERAPAMIL HYDROCHLORIDE
     Dosage: 200 MG
     Route: 048
     Dates: start: 20041028
  9. COZAAR [Concomitant]
     Active Substance: LOSARTAN POTASSIUM
     Dosage: 100 MG
     Route: 048
     Dates: start: 20080811
  10. KDUR [Concomitant]
     Dosage: 40 MEQ
     Route: 048
  11. VIOKASE [Concomitant]
     Active Substance: PANCRELIPASE
     Route: 065
     Dates: start: 20070312
  12. PRADAXA [Suspect]
     Active Substance: DABIGATRAN ETEXILATE MESYLATE
     Indication: ANTICOAGULANT THERAPY
     Dosage: 225 MG
     Route: 048
     Dates: start: 20110124, end: 20110325
  13. PRADAXA [Suspect]
     Active Substance: DABIGATRAN ETEXILATE MESYLATE
     Indication: CEREBROVASCULAR ACCIDENT PROPHYLAXIS
  14. ZOCOR [Concomitant]
     Active Substance: SIMVASTATIN
     Dosage: 20 MG
     Route: 048
     Dates: start: 20090812
  15. MICROZIDE [Concomitant]
     Active Substance: HYDROCHLOROTHIAZIDE
     Dosage: 12.5 MG
     Route: 048
     Dates: start: 20020327
  16. TOPROL XL [Concomitant]
     Active Substance: METOPROLOL SUCCINATE
     Indication: DRUG THERAPY
     Dosage: 200 MG
     Route: 048
     Dates: start: 20020326

REACTIONS (5)
  - Anaemia [Recovered/Resolved]
  - Headache [Not Recovered/Not Resolved]
  - Gastrointestinal haemorrhage [Recovered/Resolved]
  - Dizziness [Not Recovered/Not Resolved]
  - Activated partial thromboplastin time [Recovered/Resolved]

NARRATIVE: CASE EVENT DATE: 20110120
